FAERS Safety Report 8386130-0 (Version None)
Quarter: 2012Q2

REPORT INFORMATION
  Report Type: 
  Country: None (occurrence: None)
  Receive Date: 20120525
  Receipt Date: 20120511
  Transmission Date: 20120825
  Serious: Yes (Other)
  Sender: FDA-Public Use
  Company Number: TR-RANBAXY-2012RR-56119

PATIENT
  Age: 17 Year
  Sex: Male

DRUGS (3)
  1. DOXYCYCLINE [Concomitant]
     Indication: ACNE CYSTIC
     Dosage: 200 MG/DAY
     Route: 048
  2. TRIAMCINOLONE ACETONIDE [Concomitant]
     Indication: ACNE CYSTIC
     Dosage: 5 UNK, UNK
     Route: 026
  3. ISOTRETINOIN [Suspect]
     Indication: ACNE CYSTIC
     Dosage: 30 MG, BID
     Route: 065

REACTIONS (5)
  - CHEILITIS [None]
  - SKIN EXFOLIATION [None]
  - RECTAL HAEMORRHAGE [None]
  - XEROSIS [None]
  - ANAL FISSURE [None]
